FAERS Safety Report 16944637 (Version 2)
Quarter: 2019Q4

REPORT INFORMATION
  Report Type: Spontaneous
  Country: DE (occurrence: DE)
  Receive Date: 20191022
  Receipt Date: 20191230
  Transmission Date: 20200122
  Serious: Yes (Hospitalization, Other)
  Sender: FDA-Public Use
  Company Number: DE-SUN PHARMACEUTICAL INDUSTRIES LTD-2019RR-224576

PATIENT
  Age: 1 Day
  Sex: Male
  Weight: 3.33 kg

DRUGS (2)
  1. SERTRALINE [Suspect]
     Active Substance: SERTRALINE HYDROCHLORIDE
     Indication: DEPRESSION
     Dosage: 50 [MG/D (BIS 25) ] ()
     Route: 064
     Dates: start: 20180621, end: 20190330
  2. FOLIO [Concomitant]
     Active Substance: FOLIC ACID
     Indication: PROPHYLAXIS OF NEURAL TUBE DEFECT
     Dosage: 0.4 MG/D
     Route: 064
     Dates: start: 20180621, end: 20190330

REACTIONS (3)
  - Infantile apnoea [Recovered/Resolved]
  - Oxygen saturation decreased [Recovered/Resolved]
  - Atrial septal defect [Unknown]

NARRATIVE: CASE EVENT DATE: 2019
